FAERS Safety Report 7079298-X (Version None)
Quarter: 2010Q4

REPORT INFORMATION
  Report Type: 
  Country: None (occurrence: None)
  Receive Date: 20101102
  Receipt Date: 20101026
  Transmission Date: 20110411
  Serious: Yes (Hospitalization)
  Sender: FDA-Public Use
  Company Number: US-US-EMD SERONO, INC.-235525J09USA

PATIENT
  Sex: Male
  Weight: 82 kg

DRUGS (11)
  1. REBIF [Suspect]
     Indication: MULTIPLE SCLEROSIS
     Route: 058
     Dates: start: 20090901, end: 20091201
  2. REBIF [Suspect]
     Route: 058
     Dates: start: 20100107, end: 20101001
  3. ZETIA [Concomitant]
     Indication: BLOOD CHOLESTEROL INCREASED
     Route: 065
  4. ATENOLOL [Concomitant]
     Indication: HYPERTENSION
     Route: 065
  5. COUMADIN [Concomitant]
     Indication: PROPHYLAXIS
     Route: 065
  6. COUMADIN [Concomitant]
     Route: 065
  7. BACLOFEN [Concomitant]
     Indication: MUSCLE SPASTICITY
     Route: 048
     Dates: start: 20091113
  8. LUNESTA [Concomitant]
     Indication: INSOMNIA
     Route: 048
  9. ENALAPRIL [Concomitant]
     Route: 065
  10. LIPITOR [Concomitant]
     Route: 065
  11. ROPINIROLE [Concomitant]
     Route: 065

REACTIONS (6)
  - AORTIC ANEURYSM [None]
  - CARDIAC OUTPUT DECREASED [None]
  - INJECTION SITE REACTION [None]
  - KIDNEY INFECTION [None]
  - RENAL HAEMORRHAGE [None]
  - STAPHYLOCOCCAL INFECTION [None]
